FAERS Safety Report 20004274 (Version 1)
Quarter: 2021Q4

REPORT INFORMATION
  Report Type: Spontaneous
  Country: US (occurrence: US)
  Receive Date: 20211027
  Receipt Date: 20211027
  Transmission Date: 20220303
  Serious: No
  Sender: FDA-Public Use
  Company Number: None

PATIENT
  Age: 74 Year
  Sex: Male
  Weight: 98 kg

DRUGS (1)
  1. AMPHOTERICIN B [Suspect]
     Active Substance: AMPHOTERICIN B
     Indication: Cystitis
     Route: 042
     Dates: start: 20210213, end: 20210214

REACTIONS (6)
  - Tremor [None]
  - Chills [None]
  - Tachypnoea [None]
  - Oxygen saturation decreased [None]
  - Respiratory depression [None]
  - Acute kidney injury [None]

NARRATIVE: CASE EVENT DATE: 20210214
